FAERS Safety Report 9664074 (Version 1)
Quarter: 2013Q4

REPORT INFORMATION
  Report Type: Spontaneous
  Country: US (occurrence: None)
  Receive Date: 20131030
  Receipt Date: 20131030
  Transmission Date: 20140711
  Serious: No
  Sender: FDA-Public Use
  Company Number: None

PATIENT
  Age: 57 Year
  Sex: Female
  Weight: 79.38 kg

DRUGS (1)
  1. CYCLOBENZAPRINE [Suspect]
     Indication: SPONDYLITIS
     Dosage: 1 TABLET EVERY 6 HR/7 DAYS AS NEEDED BY MOUTH
     Route: 048
     Dates: start: 20130930

REACTIONS (2)
  - Restlessness [None]
  - Restless legs syndrome [None]
